FAERS Safety Report 13770432 (Version 1)
Quarter: 2017Q3

REPORT INFORMATION
  Report Type: Spontaneous
  Country: US (occurrence: US)
  Receive Date: 20170719
  Receipt Date: 20170719
  Transmission Date: 20171127
  Serious: Yes (Hospitalization, Disabling, Other)
  Sender: FDA-Public Use
  Company Number: None

PATIENT
  Age: 76 Year
  Sex: Female
  Weight: 81 kg

DRUGS (2)
  1. GABAPENTIN 300 MG AMN [Suspect]
     Active Substance: GABAPENTIN
     Indication: PAIN IN EXTREMITY
     Dosage: OTHER STRENGTH:MG;QUANTITY:30 CAPSULE(S); AT BEDTIME?
     Route: 048
     Dates: start: 20170622, end: 20170628
  2. GABAPENTIN 300 MG AMN [Suspect]
     Active Substance: GABAPENTIN
     Indication: PARAESTHESIA
     Dosage: OTHER STRENGTH:MG;QUANTITY:30 CAPSULE(S); AT BEDTIME?
     Route: 048
     Dates: start: 20170622, end: 20170628

REACTIONS (4)
  - Muscular weakness [None]
  - Memory impairment [None]
  - Tremor [None]
  - Gait inability [None]

NARRATIVE: CASE EVENT DATE: 20170626
